FAERS Safety Report 9940018 (Version 1)
Quarter: 2014Q1

REPORT INFORMATION
  Report Type: Report from Study
  Country: US (occurrence: US)
  Receive Date: 20140303
  Receipt Date: 20140303
  Transmission Date: 20141002
  Serious: No
  Sender: FDA-Public Use
  Company Number: US-ABBVIE-13P-163-1034512-00

PATIENT
  Age: 65 Year
  Sex: Male

DRUGS (4)
  1. HUMIRA [Suspect]
     Indication: CROHN^S DISEASE
     Dates: start: 20121128
  2. PROTONIX [Concomitant]
     Indication: HELICOBACTER INFECTION
  3. ALPRAZOLAM [Concomitant]
     Indication: ANXIETY
     Dosage: 1/2-1 TABLET
  4. LAMOTRIGINE [Concomitant]
     Indication: INSOMNIA

REACTIONS (4)
  - Abdominal pain [Recovering/Resolving]
  - Muscle spasms [Recovering/Resolving]
  - Gastrointestinal sounds abnormal [Recovering/Resolving]
  - Constipation [Recovering/Resolving]
